FAERS Safety Report 4733543-1 (Version None)
Quarter: 2005Q3

REPORT INFORMATION
  Report Type: 
  Country: None (occurrence: None)
  Receive Date: 20050729
  Receipt Date: 20050519
  Transmission Date: 20060218
  Serious: No
  Sender: FDA-Public Use
  Company Number: COT_0071_2005

PATIENT
  Age: 68 Year
  Sex: Female
  Weight: 78.9259 kg

DRUGS (11)
  1. VENTAVIS [Suspect]
     Indication: HYPERTENSION
     Dosage: 5 MCG Q3HR IH
     Route: 055
     Dates: start: 20050428
  2. TRACLEER [Concomitant]
  3. IMDUR [Concomitant]
  4. PREMARIN [Concomitant]
  5. NEURONTIN [Concomitant]
  6. PROTONIX [Concomitant]
  7. LEXAPRO [Concomitant]
  8. NADOLOL [Concomitant]
  9. NITRO-DUR [Concomitant]
  10. ASPIRIN [Concomitant]
  11. COUMADIN [Concomitant]

REACTIONS (3)
  - CHEST PAIN [None]
  - ORAL DISCOMFORT [None]
  - THROAT IRRITATION [None]
